FAERS Safety Report 4280148-5 (Version None)
Quarter: 2004Q1

REPORT INFORMATION
  Report Type: 
  Country: None (occurrence: None)
  Receive Date: 20040126
  Receipt Date: 20040114
  Transmission Date: 20041129
  Serious: Yes (Life-Threatening, Hospitalization)
  Sender: FDA-Public Use
  Company Number: US-JNJFOC-20040103054

PATIENT
  Age: 56 Year
  Sex: Female
  Weight: 47.6277 kg

DRUGS (2)
  1. TOPAMAX [Suspect]
     Indication: OBSESSIVE-COMPULSIVE DISORDER
     Dosage: 25 MG,  IN 1 DAY, ORAL
     Route: 048
     Dates: start: 20020101, end: 20030101
  2. KLONOPIN (CLONAZEPAM) UNSPECIFIED [Concomitant]

REACTIONS (2)
  - HAEMORRHAGE [None]
  - SPINAL CORD COMPRESSION [None]
